FAERS Safety Report 5374496-5 (Version None)
Quarter: 2007Q2

REPORT INFORMATION
  Report Type: 
  Country: None (occurrence: None)
  Receive Date: 20070629
  Receipt Date: 20070404
  Transmission Date: 20071010
  Serious: No
  Sender: FDA-Public Use
  Company Number: A0643721A

PATIENT
  Age: 21 Month
  Sex: Male
  Weight: 11.8 kg

DRUGS (1)
  1. ADVAIR DISKUS 100/50 [Suspect]
     Indication: ASTHMA
     Route: 055
     Dates: start: 20070314, end: 20070319

REACTIONS (1)
  - PSYCHOMOTOR HYPERACTIVITY [None]
